FAERS Safety Report 10239276 (Version 1)
Quarter: 2014Q1

REPORT INFORMATION
  Report Type: Spontaneous
  Country: US (occurrence: None)
  Receive Date: 20140306
  Receipt Date: 20140306
  Transmission Date: 20141002
  Serious: Yes (Hospitalization, Other)
  Sender: FDA-Public Use
  Company Number: 163-21880-13042161

PATIENT
  Age: 72 Year
  Sex: Female

DRUGS (3)
  1. REVLIMID [Suspect]
     Indication: MYELODYSPLASTIC SYNDROME
     Dosage: 10 MG, 1 IN 1 D, PO
     Route: 048
     Dates: start: 201007
  2. ZOLOFT (SERTRALINE HYDROCHLORIDE) (TABLETS) [Concomitant]
  3. LORAZEPAM (LORAZEPAM) (TABLETS) [Concomitant]

REACTIONS (6)
  - Dehydration [None]
  - Diarrhoea [None]
  - Abdominal discomfort [None]
  - Muscle spasms [None]
  - Fatigue [None]
  - Pain [None]
